FAERS Safety Report 6023813-1 (Version None)
Quarter: 2008Q4

REPORT INFORMATION
  Report Type: 
  Country: None (occurrence: None)
  Receive Date: 20081230
  Receipt Date: 20081215
  Transmission Date: 20090506
  Serious: Yes (Death)
  Sender: FDA-Public Use
  Company Number: US-PFIZER INC-2008153770

PATIENT
  Age: 47 Year
  Sex: Female

DRUGS (4)
  1. PREGABALIN [Suspect]
  2. IBUPROFEN TABLETS [Suspect]
  3. ALPRAZOLAM [Suspect]
  4. VALSARTAN [Suspect]

REACTIONS (1)
  - COMPLETED SUICIDE [None]
